FAERS Safety Report 5211321-7 (Version None)
Quarter: 2007Q1

REPORT INFORMATION
  Report Type: 
  Country: None (occurrence: None)
  Receive Date: 20070112
  Receipt Date: 20070104
  Transmission Date: 20070707
  Serious: Yes (Life-Threatening, Hospitalization)
  Sender: FDA-Public Use
  Company Number: 2006US002554

PATIENT
  Age: 64 Year
  Sex: Female

DRUGS (1)
  1. VESICARE(SOLIFENACIN) TABLET, 5MG [Suspect]
     Indication: HYPERTONIC BLADDER
     Dosage: 5 MG, UID/QD, ORAL
     Route: 048
     Dates: start: 20060905, end: 20061004

REACTIONS (1)
  - PULMONARY EMBOLISM [None]
